FAERS Safety Report 4556481-6 (Version None)
Quarter: 2005Q1

REPORT INFORMATION
  Report Type: 
  Country: None (occurrence: None)
  Receive Date: 20050114
  Receipt Date: 20050107
  Transmission Date: 20050727
  Serious: Yes (Hospitalization)
  Sender: FDA-Public Use
  Company Number: 2005US000026

PATIENT
  Age: 64 Year
  Sex: Female
  Weight: 70.7 kg

DRUGS (11)
  1. PROGRAF [Suspect]
     Indication: PROPHYLAXIS AGAINST TRANSPLANT REJECTION
     Dosage: 7.00 MG, BID, ORAL
     Route: 048
     Dates: start: 20031003
  2. PROCARDIA [Concomitant]
  3. INDERAL LA [Concomitant]
  4. LIPITOR [Concomitant]
  5. DULCOLAX [Concomitant]
  6. COLACE (DOCUSATE SODIUM) [Concomitant]
  7. VASOTEC [Concomitant]
  8. IMDUR [Concomitant]
  9. SYNTHROID [Concomitant]
  10. PROTONIX [Concomitant]
  11. PREDNISONE [Concomitant]

REACTIONS (2)
  - ESCHERICHIA INFECTION [None]
  - PYELONEPHRITIS [None]
